FAERS Safety Report 25174405 (Version 1)
Quarter: 2025Q2

REPORT INFORMATION
  Report Type: Spontaneous
  Country: US (occurrence: None)
  Receive Date: 20250408
  Receipt Date: 20250408
  Transmission Date: 20250716
  Serious: No
  Sender: FDA-CTU
  Company Number: None

PATIENT
  Age: 66 Year
  Sex: Female
  Weight: 42.3 kg

DRUGS (2)
  1. PALBOCICLIB [Suspect]
     Active Substance: PALBOCICLIB
     Indication: Breast cancer
     Dates: start: 20240410
  2. PROLIA [Suspect]
     Active Substance: DENOSUMAB

REACTIONS (6)
  - Cornea verticillata [None]
  - Neutropenia [None]
  - Fatigue [None]
  - Mouth ulceration [None]
  - Alopecia [None]
  - Adverse drug reaction [None]

NARRATIVE: CASE EVENT DATE: 20250321
